FAERS Safety Report 7342208-1 (Version None)
Quarter: 2011Q1

REPORT INFORMATION
  Report Type: 
  Country: None (occurrence: None)
  Receive Date: 20110310
  Receipt Date: 20110303
  Transmission Date: 20110831
  Serious: Yes (Hospitalization)
  Sender: FDA-Public Use
  Company Number: SI-AMGEN-SVNSP2011007646

PATIENT
  Age: 60 Year
  Sex: Male
  Weight: 96 kg

DRUGS (6)
  1. ENBREL [Suspect]
     Indication: PRODUCT USED FOR UNKNOWN INDICATION
     Dosage: 50 MG, WEEKLY
     Route: 058
     Dates: start: 20100412, end: 20100823
  2. ENAP                               /00574901/ [Concomitant]
     Dosage: 10 MG, 2X/DAY
     Route: 048
  3. NEXIUM                             /01479303/ [Concomitant]
     Dosage: 20 MG, 1X/DAY
     Route: 048
  4. TULIP                              /01326102/ [Concomitant]
     Dosage: 20 MG, 1X/DAY
     Route: 048
  5. NALGESIN                           /00256201/ [Concomitant]
     Dosage: 550 MG, 1X/DAY
     Route: 048
  6. NAPROXEN [Concomitant]
     Dosage: 550 MG, 1X/DAY
     Route: 048

REACTIONS (2)
  - CHOLECYSTITIS [None]
  - PANCREATITIS [None]
